FAERS Safety Report 7530486-5 (Version None)
Quarter: 2011Q2

REPORT INFORMATION
  Report Type: 
  Country: None (occurrence: None)
  Receive Date: 20110607
  Receipt Date: 20110602
  Transmission Date: 20111010
  Serious: Yes (Other)
  Sender: FDA-Public Use
  Company Number: SG-ABBOTT-11P-141-0730008-00

PATIENT
  Age: 4 Year
  Sex: Female
  Weight: 20.8 kg

DRUGS (2)
  1. CLARITHROMYCIN [Suspect]
     Indication: MYCOPLASMA INFECTION
  2. CLARITHROMYCIN [Suspect]
     Indication: UPPER RESPIRATORY TRACT INFECTION
     Route: 048
     Dates: start: 20101023, end: 20101026

REACTIONS (1)
  - HYPOACUSIS [None]
